FAERS Safety Report 14251595 (Version 3)
Quarter: 2018Q3

REPORT INFORMATION
  Report Type: Report from Study
  Country: BR (occurrence: BR)
  Receive Date: 20171205
  Receipt Date: 20180816
  Transmission Date: 20181010
  Serious: Yes (Death, Other)
  Sender: FDA-Public Use
  Company Number: PHHY2017BR108145

PATIENT
  Sex: Female
  Weight: 70 kg

DRUGS (3)
  1. COSENTYX [Suspect]
     Active Substance: SECUKINUMAB
     Dosage: 300 MG (2 PENS), QMO
     Route: 058
  2. CYCLOSPORINE. [Concomitant]
     Active Substance: CYCLOSPORINE
     Indication: PSORIASIS
     Dosage: 2 DF, QD
     Route: 048
     Dates: start: 2014
  3. COSENTYX [Suspect]
     Active Substance: SECUKINUMAB
     Indication: PSORIASIS
     Dosage: 2 DF, QW (150 MG)
     Route: 058
     Dates: start: 20170716

REACTIONS (17)
  - Skin mass [Unknown]
  - Headache [Unknown]
  - Chest pain [Fatal]
  - Haemorrhage [Unknown]
  - Skin exfoliation [Recovering/Resolving]
  - Sensation of foreign body [Fatal]
  - Drug prescribing error [Unknown]
  - Nervous system disorder [Unknown]
  - Pruritus [Recovering/Resolving]
  - Blood pressure systolic increased [Unknown]
  - Malaise [Unknown]
  - Myocardial infarction [Fatal]
  - Dyspnoea [Fatal]
  - Injury [Fatal]
  - Nasopharyngitis [Fatal]
  - Hair disorder [Unknown]
  - Weight decreased [Unknown]
